FAERS Safety Report 9306239 (Version 2)
Quarter: 2013Q3

REPORT INFORMATION
  Report Type: Spontaneous
  Country: NL (occurrence: NL)
  Receive Date: 20130523
  Receipt Date: 20130920
  Transmission Date: 20140515
  Serious: Yes (Death, Life-Threatening, Other)
  Sender: FDA-Public Use
  Company Number: NL-AMGEN-NLDSP2013035355

PATIENT
  Age: 63 Year
  Sex: Male

DRUGS (2)
  1. XGEVA [Suspect]
     Indication: BONE DISORDER
     Dosage: 120 MG, Q4WK
     Route: 058
     Dates: start: 20120411
  2. CALCI CHEW [Concomitant]

REACTIONS (3)
  - Death [Fatal]
  - Terminal state [Unknown]
  - Hospice care [Unknown]
